FAERS Safety Report 4578821-4 (Version None)
Quarter: 2005Q1

REPORT INFORMATION
  Report Type: 
  Country: None (occurrence: None)
  Receive Date: 20050211
  Receipt Date: 20050202
  Transmission Date: 20050727
  Serious: Yes (Hospitalization)
  Sender: FDA-Public Use
  Company Number: US-BRISTOL-MYERS SQUIBB COMPANY-12847794

PATIENT
  Age: 69 Year
  Sex: Female
  Weight: 75 kg

DRUGS (5)
  1. CARBOPLATIN [Suspect]
  2. TAXOL [Suspect]
     Dates: start: 20041117
  3. TOPROL-XL [Concomitant]
     Dates: start: 19970101
  4. VASERETIC [Concomitant]
     Dates: start: 19970101
  5. AMARYL [Concomitant]
     Dates: start: 20030101

REACTIONS (1)
  - MYOCARDIAL INFARCTION [None]
